FAERS Safety Report 15332308 (Version 1)
Quarter: 2018Q3

REPORT INFORMATION
  Report Type: Spontaneous
  Country: US (occurrence: US)
  Receive Date: 20180829
  Receipt Date: 20180829
  Transmission Date: 20181010
  Serious: Yes (Hospitalization)
  Sender: FDA-Public Use
  Company Number: US-ASTRAZENECA-2018SF07484

PATIENT
  Age: 65 Year
  Sex: Female
  Weight: 77.1 kg

DRUGS (11)
  1. CRESTOR [Suspect]
     Active Substance: ROSUVASTATIN CALCIUM
     Indication: BLOOD CHOLESTEROL ABNORMAL
     Dosage: UNKNOWN
     Route: 048
     Dates: start: 2000
  2. FISH OIL [Concomitant]
     Active Substance: FISH OIL
     Indication: BLOOD CHOLESTEROL DECREASED
     Dosage: 1TSP DAILY
     Route: 048
     Dates: start: 1998
  3. METOPROLOL. [Suspect]
     Active Substance: METOPROLOL
     Indication: HEART RATE ABNORMAL
     Route: 048
     Dates: start: 201608
  4. VITAMIN C [Concomitant]
     Active Substance: ASCORBIC ACID
     Indication: PROPHYLAXIS
     Route: 048
  5. METOPROLOL. [Suspect]
     Active Substance: METOPROLOL
     Indication: BLOOD PRESSURE ABNORMAL
     Route: 048
     Dates: start: 201608
  6. BRILINTA [Suspect]
     Active Substance: TICAGRELOR
     Indication: STENT PLACEMENT
     Route: 048
     Dates: start: 201709
  7. TOPICAL HORMONE ? ESTROGEN AND PROGESTREN [Concomitant]
     Indication: HYSTERECTOMY
     Route: 061
     Dates: start: 2010
  8. COQ10 [Concomitant]
     Active Substance: UBIDECARENONE
     Indication: CARDIAC DISORDER
     Route: 048
  9. ASPIRIN. [Concomitant]
     Active Substance: ASPIRIN
     Indication: ADJUVANT THERAPY
     Route: 048
     Dates: start: 20160917
  10. BRILINTA [Suspect]
     Active Substance: TICAGRELOR
     Indication: STENT PLACEMENT
     Route: 048
     Dates: start: 20160917, end: 201709
  11. COQ10 [Concomitant]
     Active Substance: UBIDECARENONE
     Indication: BLOOD DISORDER
     Route: 048

REACTIONS (20)
  - Vitamin B12 decreased [Unknown]
  - Mental impairment [Unknown]
  - Coronary artery occlusion [Not Recovered/Not Resolved]
  - Weight decreased [Unknown]
  - Stress [Not Recovered/Not Resolved]
  - Scar [Unknown]
  - Nervousness [Unknown]
  - Arthropathy [Unknown]
  - Drug hypersensitivity [Unknown]
  - Weight increased [Unknown]
  - Feeling abnormal [Unknown]
  - Visual impairment [Unknown]
  - Asthenia [Unknown]
  - Blood cholesterol abnormal [Unknown]
  - Rash [Unknown]
  - Heart valve incompetence [Unknown]
  - Blood magnesium decreased [Unknown]
  - Angina pectoris [Not Recovered/Not Resolved]
  - Myalgia [Unknown]
  - Dyspepsia [Unknown]

NARRATIVE: CASE EVENT DATE: 2000
